FAERS Safety Report 23275209 (Version 1)
Quarter: 2023Q4

REPORT INFORMATION
  Report Type: Spontaneous
  Country: FR (occurrence: FR)
  Receive Date: 20231208
  Receipt Date: 20231208
  Transmission Date: 20240110
  Serious: Yes (Hospitalization, Other)
  Sender: FDA-Public Use
  Company Number: FR-AFSSAPS-CF2023000580

PATIENT
  Age: 59 Year
  Sex: Female
  Weight: 54 kg

DRUGS (2)
  1. DIGOXIN [Suspect]
     Active Substance: DIGOXIN
     Indication: Wrong dose
     Dosage: SURDOSAGE
     Route: 048
     Dates: start: 20231023, end: 20231023
  2. DIGOXIN [Suspect]
     Active Substance: DIGOXIN
     Indication: Coronary artery disease

REACTIONS (4)
  - Diarrhoea [Recovering/Resolving]
  - Acute kidney injury [Recovering/Resolving]
  - Sinus bradycardia [Recovering/Resolving]
  - Wrong dose [Recovered/Resolved]

NARRATIVE: CASE EVENT DATE: 20231023
